FAERS Safety Report 23353733 (Version 1)
Quarter: 2024Q1

REPORT INFORMATION
  Report Type: Spontaneous
  Country: US (occurrence: US)
  Receive Date: 20240101
  Receipt Date: 20240101
  Transmission Date: 20240410
  Serious: No
  Sender: FDA-Public Use
  Company Number: US-PURDUE PHARMA-USA-2023-0305369

PATIENT
  Age: 39 Year
  Sex: Male

DRUGS (4)
  1. OXYCODONE HYDROCHLORIDE [Suspect]
     Active Substance: OXYCODONE HYDROCHLORIDE
     Indication: Product used for unknown indication
     Dosage: 702 PILLS OF 10 MILLIGRAMS
     Route: 065
  2. NORCO [Suspect]
     Active Substance: ACETAMINOPHEN\HYDROCODONE BITARTRATE
     Indication: Product used for unknown indication
     Dosage: 234 PILLS WHICH CONTAINED A TOTAL OF 2,340 MILLIGRAMS OF THE OPIOID HYDROCODONE
     Route: 065
  3. XANAX [Suspect]
     Active Substance: ALPRAZOLAM
     Indication: Product used for unknown indication
     Dosage: 180 PILLS
     Route: 065
  4. PROMETHAZINE WITH CODEINE [Suspect]
     Active Substance: CODEINE PHOSPHATE\PROMETHAZINE HYDROCHLORIDE
     Indication: Product used for unknown indication
     Dosage: 240 MILLILITERS
     Route: 065

REACTIONS (1)
  - Drug diversion [Unknown]
